FAERS Safety Report 20507185 (Version 2)
Quarter: 2022Q1

REPORT INFORMATION
  Report Type: Report from Study
  Country: CO (occurrence: CO)
  Receive Date: 20220223
  Receipt Date: 20220314
  Transmission Date: 20220423
  Serious: Yes (Hospitalization, Other)
  Sender: FDA-Public Use
  Company Number: CO-ASTELLAS-2022US006393

PATIENT
  Age: 56 Year
  Sex: Female
  Weight: 61 kg

DRUGS (3)
  1. TACROLIMUS [Suspect]
     Active Substance: TACROLIMUS
     Indication: Renal transplant
     Dosage: 7 MG (5 MG, ONE CAPSULE, AND 1 MG, TWO CAPSULES), ONCE DAILY
     Route: 048
     Dates: start: 20160321, end: 2017
  2. TACROLIMUS [Suspect]
     Active Substance: TACROLIMUS
     Dosage: 7 MG (5 MG, ONE CAPSULE, AND 1 MG, TWO CAPSULES), ONCE DAILY
     Route: 048
     Dates: start: 202106
  3. MYCOPHENOLATE MOFETIL [Concomitant]
     Active Substance: MYCOPHENOLATE MOFETIL
     Indication: Product used for unknown indication
     Dosage: UNK UNK, UNKNOWN FREQ.
     Route: 065

REACTIONS (5)
  - Limb discomfort [Not Recovered/Not Resolved]
  - Rash [Not Recovered/Not Resolved]
  - Proteinuria [Not Recovered/Not Resolved]
  - COVID-19 [Recovering/Resolving]
  - Sarcoma [Recovered/Resolved]

NARRATIVE: CASE EVENT DATE: 20170101
